FAERS Safety Report 5146994-0 (Version None)
Quarter: 2006Q4

REPORT INFORMATION
  Report Type: 
  Country: None (occurrence: None)
  Receive Date: 20061109
  Receipt Date: 20061102
  Transmission Date: 20070319
  Serious: Yes (Death, Hospitalization, Other)
  Sender: FDA-Public Use
  Company Number: PT-BRISTOL-MYERS SQUIBB COMPANY-13567110

PATIENT
  Age: 65 Year
  Sex: Male

DRUGS (5)
  1. ERBITUX [Suspect]
     Indication: RECTAL CANCER
     Route: 042
     Dates: start: 20061009, end: 20061009
  2. FLUOROURACIL [Suspect]
     Indication: RECTAL CANCER
     Dates: start: 20061009, end: 20061009
  3. FOLINIC ACID [Suspect]
     Indication: RECTAL CANCER
     Dates: start: 20061009, end: 20061009
  4. OXALIPLATIN [Suspect]
     Indication: RECTAL CANCER
     Dates: start: 20061009, end: 20061009
  5. ATENOLOL [Concomitant]

REACTIONS (2)
  - INTESTINAL OBSTRUCTION [None]
  - SEPTIC SHOCK [None]
